FAERS Safety Report 5589596-4 (Version None)
Quarter: 2008Q1

REPORT INFORMATION
  Report Type: 
  Country: None (occurrence: None)
  Receive Date: 20080114
  Receipt Date: 20080108
  Transmission Date: 20080703
  Serious: Yes (Hospitalization, Other)
  Sender: FDA-Public Use
  Company Number: AR-AMGEN-US250310

PATIENT
  Sex: Male

DRUGS (4)
  1. PANITUMUMAB [Suspect]
     Indication: COLORECTAL CANCER
     Route: 042
     Dates: start: 20071003
  2. OXALIPLATIN [Concomitant]
     Route: 042
     Dates: start: 20071011
  3. LEUCOVORIN [Concomitant]
     Route: 042
     Dates: start: 20071011
  4. FLUOROURACIL [Concomitant]
     Route: 042
     Dates: start: 20071011

REACTIONS (6)
  - ABDOMINAL PAIN [None]
  - ABDOMINAL WALL ABSCESS [None]
  - ANAEMIA [None]
  - HYPOMAGNESAEMIA [None]
  - HYPOTENSION [None]
  - LEUKOPENIA [None]
